FAERS Safety Report 18651477 (Version 1)
Quarter: 2020Q4

REPORT INFORMATION
  Report Type: Other
  Country: ET (occurrence: ET)
  Receive Date: 20201223
  Receipt Date: 20201223
  Transmission Date: 20210114
  Serious: Yes (Other)
  Sender: FDA-Public Use
  Company Number: ET-FDC LIMITED-2103372

PATIENT
  Age: 25 Year
  Sex: Male

DRUGS (3)
  1. CEFEPIME [Suspect]
     Active Substance: CEFEPIME HYDROCHLORIDE
     Route: 065
  2. MEROPENEM. [Suspect]
     Active Substance: MEROPENEM
     Route: 065
  3. CIPROFLOXACIN. [Suspect]
     Active Substance: CIPROFLOXACIN
     Indication: FEBRILE NEUTROPENIA
     Route: 065

REACTIONS (1)
  - Pseudomembranous colitis [Recovered/Resolved]
